FAERS Safety Report 7499808-8 (Version None)
Quarter: 2011Q2

REPORT INFORMATION
  Report Type: 
  Country: None (occurrence: None)
  Receive Date: 20110524
  Receipt Date: 20110517
  Transmission Date: 20111010
  Serious: Yes (Hospitalization)
  Sender: FDA-Public Use
  Company Number: US-ABBOTT-11P-163-0726937-00

PATIENT
  Sex: Female

DRUGS (1)
  1. HUMIRA [Suspect]
     Indication: CROHN'S DISEASE
     Dosage: 1 IN 2 WEEKS, LOADING DOSE COMPLETED
     Route: 058
     Dates: start: 20110401

REACTIONS (3)
  - CHEST PAIN [None]
  - DYSPNOEA [None]
  - CARDIAC DISORDER [None]
